FAERS Safety Report 17725811 (Version 1)
Quarter: 2020Q2

REPORT INFORMATION
  Report Type: Spontaneous
  Country: CA (occurrence: CA)
  Receive Date: 20200429
  Receipt Date: 20200429
  Transmission Date: 20200714
  Serious: Yes (Other)
  Sender: FDA-Public Use
  Company Number: CA-PFIZER INC-2020172435

PATIENT
  Age: 22 Year
  Sex: Female

DRUGS (1)
  1. AZITHROMYCIN ANHYDROUS. [Suspect]
     Active Substance: AZITHROMYCIN ANHYDROUS
     Dosage: 2 G, SINGLE
     Route: 048

REACTIONS (3)
  - Feeling of body temperature change [Unknown]
  - Nausea [Unknown]
  - Vertigo [Unknown]
